FAERS Safety Report 17455063 (Version 1)
Quarter: 2020Q1

REPORT INFORMATION
  Report Type: Spontaneous
  Country: NL (occurrence: NL)
  Receive Date: 20200225
  Receipt Date: 20200225
  Transmission Date: 20200409
  Serious: Yes (Hospitalization)
  Sender: FDA-Public Use
  Company Number: NL-TEVA-2020-NL-1191085

PATIENT
  Age: 84 Year
  Sex: Female

DRUGS (8)
  1. APIXABAN 2,5 MG TABLET [Concomitant]
     Dosage: 2DD; 2MG
  2. BEZAFIBRAAT (BEZALIP) 400 MG TABLET MGA [Concomitant]
     Dosage: 1DD1; 400MG
  3. CLEMASTINE 1 MG TABLET [Concomitant]
     Dosage: 2DD1; 1MG
  4. DOXYCYCLINE. [Suspect]
     Active Substance: DOXYCYCLINE
     Indication: ERYTHEMA MIGRANS
     Dosage: 100 MG (MILLIGRAMS), ONCE A DAY, 2
     Dates: start: 20200110, end: 20200115
  5. ESOMEPRAZOL (NEXIUM) 20 MG TABLET MSR, [Concomitant]
     Dosage: 1DD; 20MG
  6. THYRAX 137,5 UG TABLET [Concomitant]
     Dosage: 137.5 MCG
  7. DIGOXINE 0,125MG [Concomitant]
     Dosage: 1 DD 0.125MG
  8. FLECAINIDE 100 MG TABLET [Concomitant]
     Dosage: 1DD1; 100MG

REACTIONS (2)
  - Hypertension [Unknown]
  - Hepatic enzyme increased [Recovering/Resolving]

NARRATIVE: CASE EVENT DATE: 20200118
